FAERS Safety Report 21250449 (Version 1)
Quarter: 2022Q3

REPORT INFORMATION
  Report Type: Spontaneous
  Country: AU (occurrence: AU)
  Receive Date: 20220824
  Receipt Date: 20220824
  Transmission Date: 20221026
  Serious: Yes (Death)
  Sender: FDA-Public Use
  Company Number: AU-002147023-NVSC2022AU181346

PATIENT

DRUGS (2)
  1. RUXOLITINIB [Suspect]
     Active Substance: RUXOLITINIB
     Indication: Primary myelofibrosis
     Dosage: UNK
     Route: 065
  2. INTERFERON [Concomitant]
     Active Substance: INTERFERON
     Indication: Radiotherapy
     Dosage: UNK
     Route: 065

REACTIONS (3)
  - Fungal infection [Fatal]
  - Therapeutic response decreased [Unknown]
  - Splenomegaly [Unknown]
